FAERS Safety Report 7953078-2 (Version None)
Quarter: 2011Q4

REPORT INFORMATION
  Report Type: 
  Country: None (occurrence: None)
  Receive Date: 20111201
  Receipt Date: 20111129
  Transmission Date: 20120403
  Serious: Yes (Other)
  Sender: FDA-Public Use
  Company Number: BR-BAYER-2011-115401

PATIENT
  Age: 67 Year
  Sex: Female

DRUGS (8)
  1. AMLODIPINE BESYLATE [Concomitant]
  2. NEURONTIN [Concomitant]
  3. METOPROLOL SUCCINATE [Concomitant]
  4. METFFORMIN HYDROCHLORIDE [Concomitant]
  5. DUSPATALIN [Concomitant]
  6. ULTRAVIST 150 [Suspect]
     Indication: COMPUTERISED TOMOGRAM
     Dosage: 70 ML, UNK
     Route: 042
     Dates: start: 20111101
  7. ATACAND [Concomitant]
  8. PANTOPRAZOLE [Concomitant]

REACTIONS (2)
  - ODYNOPHAGIA [None]
  - MALAISE [None]
